FAERS Safety Report 5020634-3 (Version None)
Quarter: 2006Q2

REPORT INFORMATION
  Report Type: 
  Country: None (occurrence: None)
  Receive Date: 20060602
  Receipt Date: 20060516
  Transmission Date: 20061013
  Serious: Yes (Hospitalization, Other)
  Sender: FDA-Public Use
  Company Number: US200605003445

PATIENT
  Age: 44 Year
  Sex: Male

DRUGS (4)
  1. CYMBALTA [Suspect]
     Indication: DEPRESSION
     Dosage: 60 MG, DAILY (1/D); 20 MG, DAILY (1/D);  60 MG, DAILY (1/D);  120 MG, DAILY (1/D)
     Dates: start: 20050601, end: 20060301
  2. CYMBALTA [Suspect]
     Indication: DEPRESSION
     Dosage: 60 MG, DAILY (1/D); 20 MG, DAILY (1/D);  60 MG, DAILY (1/D);  120 MG, DAILY (1/D)
     Dates: start: 20050401
  3. CYMBALTA [Suspect]
     Indication: DEPRESSION
     Dosage: 60 MG, DAILY (1/D); 20 MG, DAILY (1/D);  60 MG, DAILY (1/D);  120 MG, DAILY (1/D)
     Dates: start: 20060516
  4. KLONOPIN [Concomitant]

REACTIONS (13)
  - ABNORMAL BEHAVIOUR [None]
  - AMMONIA INCREASED [None]
  - COGNITIVE DISORDER [None]
  - CONVULSION [None]
  - DISORIENTATION [None]
  - FALL [None]
  - HYPERHIDROSIS [None]
  - MEMORY IMPAIRMENT [None]
  - METABOLIC ENCEPHALOPATHY [None]
  - NAUSEA [None]
  - PAIN [None]
  - PHOTOPHOBIA [None]
  - SYNCOPE [None]
